FAERS Safety Report 9756337 (Version 1)
Quarter: 2013Q4

REPORT INFORMATION
  Report Type: Other
  Country: AU (occurrence: AU)
  Receive Date: 20131213
  Receipt Date: 20131213
  Transmission Date: 20140711
  Serious: Yes (Life-Threatening, Hospitalization)
  Sender: FDA-Public Use
  Company Number: AU-SPECTRUM PHARMACEUTICALS, INC.-13-Z-AU-00325

PATIENT
  Age: 67 Year
  Sex: Male
  Weight: 82 kg

DRUGS (8)
  1. ZEVALIN [Suspect]
     Indication: DIFFUSE LARGE B-CELL LYMPHOMA
     Dosage: 1080 MBQ, SINGLE
     Route: 042
     Dates: start: 20130531, end: 20130531
  2. RITUXIMAB [Suspect]
     Indication: DIFFUSE LARGE B-CELL LYMPHOMA
     Dosage: 500 MG, SINGLE
     Route: 042
     Dates: start: 20130531, end: 20130531
  3. BCNU [Suspect]
     Indication: DIFFUSE LARGE B-CELL LYMPHOMA
     Dosage: 600 MG, UNK
     Route: 042
     Dates: start: 20130608, end: 20130608
  4. ETOPOSIDE [Suspect]
     Indication: DIFFUSE LARGE B-CELL LYMPHOMA
     Dosage: 200 MG, BID
     Route: 042
     Dates: start: 20130609, end: 20130612
  5. CYTARABINE [Suspect]
     Indication: DIFFUSE LARGE B-CELL LYMPHOMA
     Dosage: 400 MG, BID
     Route: 042
     Dates: start: 20130609, end: 20130612
  6. MELPHALAN [Suspect]
     Indication: DIFFUSE LARGE B-CELL LYMPHOMA
     Dosage: 270 MG, QD
     Route: 048
     Dates: start: 20130613, end: 20130613
  7. SLOW-K [Concomitant]
     Indication: PRODUCT USED FOR UNKNOWN INDICATION
     Dosage: UNK, UNKNOWN
     Route: 065
     Dates: start: 2010
  8. PERINDOPRIL [Concomitant]
     Indication: PRODUCT USED FOR UNKNOWN INDICATION
     Dosage: UNK, UNKNOWN
     Route: 065
     Dates: start: 2008

REACTIONS (1)
  - Pneumocystis jirovecii pneumonia [Recovered/Resolved]
